FAERS Safety Report 10249036 (Version 3)
Quarter: 2014Q3

REPORT INFORMATION
  Report Type: Spontaneous
  Country: US (occurrence: US)
  Receive Date: 20140620
  Receipt Date: 20140917
  Transmission Date: 20150326
  Serious: Yes (Disabling, Other)
  Sender: FDA-Public Use
  Company Number: PHEH2014US012285

PATIENT
  Age: 68 Year
  Sex: Female
  Weight: 70.75 kg

DRUGS (5)
  1. RECLAST [Suspect]
     Active Substance: ZOLEDRONIC ACID
     Indication: OSTEOPENIA
     Dosage: UNK
     Route: 042
     Dates: end: 201306
  2. LEVOTHYROXINE [Concomitant]
     Active Substance: LEVOTHYROXINE
     Indication: HYPOTHYROIDISM
     Dosage: UNK UKN, 50 DAILY
     Route: 048
     Dates: start: 20041115
  3. RECLAST [Suspect]
     Active Substance: ZOLEDRONIC ACID
     Indication: BONE DISORDER
     Dosage: UNK UKN, UNK
     Route: 042
     Dates: start: 200901
  4. MULTIVITAMIN                       /00097801/ [Concomitant]
     Active Substance: VITAMINS
     Dosage: UNK UKN, UNK
  5. CALCIUM +D                         /00944201/ [Concomitant]
     Active Substance: CALCIUM\VITAMIN D
     Dosage: UNK UKN, UNK

REACTIONS (8)
  - Osteonecrosis of jaw [Unknown]
  - Bone lesion [Not Recovered/Not Resolved]
  - Pain [Recovered/Resolved with Sequelae]
  - Oral disorder [Unknown]
  - Bone loss [Unknown]
  - Jaw disorder [Unknown]
  - Exposed bone in jaw [Unknown]
  - Aphagia [Unknown]

NARRATIVE: CASE EVENT DATE: 201402
